FAERS Safety Report 4327181-2 (Version None)
Quarter: 2004Q1

REPORT INFORMATION
  Report Type: 
  Country: None (occurrence: None)
  Receive Date: 20040330
  Receipt Date: 20040319
  Transmission Date: 20041129
  Serious: Yes (Other)
  Sender: FDA-Public Use
  Company Number: PHHO2004CO04169

PATIENT
  Age: 28 Year
  Sex: Male

DRUGS (1)
  1. GLEEVEC [Suspect]
     Indication: CHRONIC MYELOID LEUKAEMIA
     Dosage: 600 MG, QD
     Route: 048
     Dates: start: 20021001

REACTIONS (3)
  - HAEMOGLOBIN DECREASED [None]
  - LEUKOCYTOSIS [None]
  - THROMBOCYTOPENIA [None]
